FAERS Safety Report 9748817 (Version 1)
Quarter: 2013Q4

REPORT INFORMATION
  Report Type: Spontaneous
  Country: US (occurrence: US)
  Receive Date: 20131212
  Receipt Date: 20131212
  Transmission Date: 20140711
  Serious: No
  Sender: FDA-Public Use
  Company Number: US-ENDO PHARMACEUTICALS INC.-PRED20120011

PATIENT
  Age: 76 Year
  Sex: Female
  Weight: 93.07 kg

DRUGS (1)
  1. PREDNISONE TABLETS [Suspect]
     Indication: POLYMYALGIA RHEUMATICA
     Route: 048
     Dates: start: 20120106

REACTIONS (1)
  - Nausea [Not Recovered/Not Resolved]
